FAERS Safety Report 25612003 (Version 1)
Quarter: 2025Q3

REPORT INFORMATION
  Report Type: Spontaneous
  Country: EU (occurrence: EU)
  Receive Date: 20250728
  Receipt Date: 20250728
  Transmission Date: 20251020
  Serious: Yes (Hospitalization)
  Sender: MYLAN
  Company Number: None

PATIENT
  Age: 28 Year
  Sex: Female
  Weight: 72.2 kg

DRUGS (4)
  1. KETOPROFEN [Suspect]
     Active Substance: KETOPROFEN
     Indication: Pain
     Dosage: 1 DOSAGE FORM, BID
     Dates: start: 20250417, end: 20250420
  2. KETOPROFEN [Suspect]
     Active Substance: KETOPROFEN
     Dosage: 1 DOSAGE FORM, BID
     Route: 048
     Dates: start: 20250417, end: 20250420
  3. KETOPROFEN [Suspect]
     Active Substance: KETOPROFEN
     Dosage: 1 DOSAGE FORM, BID
     Route: 048
     Dates: start: 20250417, end: 20250420
  4. KETOPROFEN [Suspect]
     Active Substance: KETOPROFEN
     Dosage: 1 DOSAGE FORM, BID
     Dates: start: 20250417, end: 20250420

REACTIONS (1)
  - Rhabdomyolysis [Recovering/Resolving]

NARRATIVE: CASE EVENT DATE: 20250419
